FAERS Safety Report 11057962 (Version 1)
Quarter: 2015Q2

REPORT INFORMATION
  Report Type: Spontaneous
  Country: US (occurrence: None)
  Receive Date: 20150421
  Receipt Date: 20150421
  Transmission Date: 20150821
  Serious: Yes (Death)
  Sender: FDA-Public Use
  Company Number: None

PATIENT
  Age: 78 Year
  Sex: Male

DRUGS (1)
  1. TEMOZOLOMIDE 140MG TEVA [Suspect]
     Active Substance: TEMOZOLOMIDE
     Indication: BRAIN NEOPLASM MALIGNANT
     Dosage: 280MG, QD FOR 5 DAYS, PO
     Route: 048
     Dates: start: 20140729, end: 20150319

REACTIONS (1)
  - Death [None]

NARRATIVE: CASE EVENT DATE: 20150319
